FAERS Safety Report 16203242 (Version 1)
Quarter: 2019Q2

REPORT INFORMATION
  Report Type: Spontaneous
  Country: FR (occurrence: FR)
  Receive Date: 20190416
  Receipt Date: 20190416
  Transmission Date: 20190711
  Serious: Yes (Death, Other)
  Sender: FDA-Public Use
  Company Number: FR-OTSUKA-2019_012699

PATIENT
  Age: 51 Year
  Sex: Female
  Weight: 60 kg

DRUGS (12)
  1. BUSILVEX [Suspect]
     Active Substance: BUSULFAN
     Indication: B-CELL LYMPHOMA
     Dosage: 218 MG, CYCLICAL
     Route: 042
     Dates: start: 20180214, end: 20181215
  2. TEPADINA [Suspect]
     Active Substance: THIOTEPA
     Indication: B-CELL LYMPHOMA
     Dosage: CYCLICAL
     Route: 042
     Dates: start: 20181211, end: 20181213
  3. PROPRANOLOL [Concomitant]
     Active Substance: PROPRANOLOL HYDROCHLORIDE
     Indication: TACHYCARDIA
     Dosage: 40 MG, IN THE EVENING
     Route: 065
     Dates: start: 2016
  4. ETOPOSIDE. [Suspect]
     Active Substance: ETOPOSIDE
     Indication: B-CELL LYMPHOMA
     Dosage: 160 MG, CYCLICAL
     Route: 042
     Dates: start: 20180612, end: 20181003
  5. ENDOXAN [Suspect]
     Active Substance: CYCLOPHOSPHAMIDE
     Indication: B-CELL LYMPHOMA
     Dosage: 4100 MG, CYCLICAL
     Route: 042
     Dates: start: 20181217, end: 20181217
  6. CYTARABINE SANDOZ [Suspect]
     Active Substance: CYTARABINE
     Indication: B-CELL LYMPHOMA
     Dosage: 4800 MG, CYCLICAL
     Route: 042
     Dates: start: 20181031, end: 20181101
  7. BUSILVEX [Suspect]
     Active Substance: BUSULFAN
     Dosage: 109 MG, CYCLICAL
     Route: 042
     Dates: start: 20181216, end: 20181216
  8. METHOTREXATE. [Suspect]
     Active Substance: METHOTREXATE
     Indication: B-CELL LYMPHOMA
     Dosage: 4800 MG, CYCLICAL
     Route: 042
     Dates: start: 20180611, end: 20181016
  9. RITUXIMAB. [Suspect]
     Active Substance: RITUXIMAB
     Indication: B-CELL LYMPHOMA
     Dosage: 375 MG/M2 DAILY: 600MG J1, CYCLICAL
     Route: 042
     Dates: start: 20180611, end: 20181101
  10. PROPRANOLOL [Concomitant]
     Active Substance: PROPRANOLOL HYDROCHLORIDE
     Dosage: 20 MG, IN THE EVENING
     Route: 048
     Dates: start: 2016
  11. BICNU [Suspect]
     Active Substance: CARMUSTINE
     Indication: B-CELL LYMPHOMA
     Dosage: 160 MG, CYCLICAL
     Route: 042
     Dates: start: 20180613, end: 20181004
  12. ESOMEPRAZOLE. [Concomitant]
     Active Substance: ESOMEPRAZOLE MAGNESIUM
     Indication: PRODUCT USED FOR UNKNOWN INDICATION
     Dosage: 20 MG, IN THE EVENING
     Route: 048

REACTIONS (2)
  - Acute respiratory distress syndrome [Fatal]
  - Pulmonary fibrosis [Fatal]

NARRATIVE: CASE EVENT DATE: 20190215
